FAERS Safety Report 24807742 (Version 1)
Quarter: 2025Q1

REPORT INFORMATION
  Report Type: Spontaneous
  Country: CN (occurrence: CN)
  Receive Date: 20250105
  Receipt Date: 20250105
  Transmission Date: 20250408
  Serious: Yes (Other)
  Sender: BEIGENE
  Company Number: CN-BEIGENE-BGN-2024-021124

PATIENT

DRUGS (4)
  1. TISLELIZUMAB [Suspect]
     Active Substance: TISLELIZUMAB
     Indication: Squamous cell carcinoma of lung
  2. TISLELIZUMAB [Suspect]
     Active Substance: TISLELIZUMAB
     Dosage: 200 MILLIGRAM, Q3WK
     Route: 041
     Dates: start: 20241126
  3. ENDOSTATIN [Concomitant]
     Active Substance: ENDOSTATIN
     Indication: Squamous cell carcinoma of lung
     Dosage: 210 MILLIGRAM, Q3WK
     Dates: start: 20241126
  4. VINORELBINE [Concomitant]
     Active Substance: VINORELBINE TARTRATE
     Indication: Squamous cell carcinoma of lung
     Dosage: 35 MILLIGRAM, Q3WK, D1, D8
     Dates: start: 20241126

REACTIONS (4)
  - Acute kidney injury [Recovering/Resolving]
  - Disease progression [Unknown]
  - Myelosuppression [Unknown]
  - Cardiac disorder [Unknown]

NARRATIVE: CASE EVENT DATE: 20241114
